FAERS Safety Report 12662138 (Version 4)
Quarter: 2016Q4

REPORT INFORMATION
  Report Type: Spontaneous
  Country: KR (occurrence: KR)
  Receive Date: 20160817
  Receipt Date: 20161025
  Transmission Date: 20170207
  Serious: Yes (Hospitalization)
  Sender: FDA-Public Use
  Company Number: KR-009507513-1608KOR008947

PATIENT
  Age: 64 Year
  Sex: Female
  Weight: 54.3 kg

DRUGS (23)
  1. EMEND (FOSAPREPITANT DIMEGLUMINE) [Suspect]
     Active Substance: FOSAPREPITANT DIMEGLUMINE
     Dosage: 150 MG, ONCE
     Route: 042
     Dates: start: 20161004, end: 20161004
  2. AD MYCIN VIAL [Concomitant]
     Dosage: 63 MG, ONCE, CYCLE 2
     Route: 042
     Dates: start: 20160823, end: 20160823
  3. AD MYCIN VIAL [Concomitant]
     Dosage: 63 MG, ONCE, CYCLE 3
     Route: 042
     Dates: start: 20160913, end: 20160913
  4. ENDOXAN [Concomitant]
     Active Substance: CYCLOPHOSPHAMIDE
     Indication: BREAST CANCER
     Dosage: 912 MG, ONCE CYCLE 1
     Route: 042
     Dates: start: 20160628, end: 20160628
  5. DEXAMETHASONE. [Concomitant]
     Active Substance: DEXAMETHASONE
     Dosage: 0.5 MG, QD
     Route: 048
     Dates: start: 20161005, end: 20161007
  6. EMEND (FOSAPREPITANT DIMEGLUMINE) [Suspect]
     Active Substance: FOSAPREPITANT DIMEGLUMINE
     Indication: PROPHYLAXIS OF NAUSEA AND VOMITING
     Dosage: 150 MG, ONCE
     Route: 042
     Dates: start: 20160628, end: 20160628
  7. AD MYCIN VIAL [Concomitant]
     Indication: BREAST CANCER
     Dosage: 91 MG, ONCE CYCLE 1
     Route: 042
     Dates: start: 20160628, end: 20160628
  8. ENDOXAN [Concomitant]
     Active Substance: CYCLOPHOSPHAMIDE
     Dosage: 634 MG, ONCE, CYCLE 2
     Route: 042
     Dates: start: 20160823, end: 20160823
  9. ENDOXAN [Concomitant]
     Active Substance: CYCLOPHOSPHAMIDE
     Dosage: 634 MG, ONCE, CYCLE 3
     Route: 042
     Dates: start: 20160913, end: 20160913
  10. EMEND (FOSAPREPITANT DIMEGLUMINE) [Suspect]
     Active Substance: FOSAPREPITANT DIMEGLUMINE
     Dosage: 150 MG, ONCE
     Route: 042
     Dates: start: 20160823, end: 20160823
  11. ENDOXAN [Concomitant]
     Active Substance: CYCLOPHOSPHAMIDE
     Dosage: 635 MG, ONCE, CYCLE 4
     Route: 042
     Dates: start: 20161004, end: 20161004
  12. ALOXI [Concomitant]
     Active Substance: PALONOSETRON HYDROCHLORIDE
     Indication: PROPHYLAXIS OF NAUSEA AND VOMITING
     Dosage: 5 ML, ONCE
     Route: 042
     Dates: start: 20160628, end: 20160628
  13. EMEND (FOSAPREPITANT DIMEGLUMINE) [Suspect]
     Active Substance: FOSAPREPITANT DIMEGLUMINE
     Dosage: 150 MG, ONCE
     Route: 042
     Dates: start: 20160913, end: 20160913
  14. ALOXI [Concomitant]
     Active Substance: PALONOSETRON HYDROCHLORIDE
     Dosage: 5 ML, ONCE
     Route: 042
     Dates: start: 20160913, end: 20160913
  15. MEIACT [Concomitant]
     Active Substance: CEFDITOREN PIVOXIL
     Indication: INFECTION PROPHYLAXIS
     Dosage: 100 MG, TID
     Route: 048
     Dates: start: 20160627, end: 20160629
  16. DEXAMETHASONE SODIUM PHOSPHATE. [Concomitant]
     Active Substance: DEXAMETHASONE SODIUM PHOSPHATE
     Indication: PROPHYLAXIS OF NAUSEA AND VOMITING
     Dosage: 5 MG, ONCE
     Route: 042
     Dates: start: 20160628, end: 20160628
  17. DEXAMETHASONE SODIUM PHOSPHATE. [Concomitant]
     Active Substance: DEXAMETHASONE SODIUM PHOSPHATE
     Dosage: 5 MG, ONCE
     Route: 042
     Dates: start: 20160913, end: 20160913
  18. AD MYCIN VIAL [Concomitant]
     Dosage: 63 MG, ONCE, CYCLE 4
     Route: 042
     Dates: start: 20161004, end: 20161004
  19. DEXAMETHASONE SODIUM PHOSPHATE. [Concomitant]
     Active Substance: DEXAMETHASONE SODIUM PHOSPHATE
     Dosage: 5 MG, ONCE
     Route: 042
     Dates: start: 20161004, end: 20161004
  20. ALOXI [Concomitant]
     Active Substance: PALONOSETRON HYDROCHLORIDE
     Dosage: 5 ML, ONCE
     Route: 042
     Dates: start: 20161004, end: 20161004
  21. DEXAMETHASONE SODIUM PHOSPHATE. [Concomitant]
     Active Substance: DEXAMETHASONE SODIUM PHOSPHATE
     Dosage: 5 MG, ONCE
     Route: 042
     Dates: start: 20160823, end: 20160823
  22. DEXAMETHASONE. [Concomitant]
     Active Substance: DEXAMETHASONE
     Indication: PROPHYLAXIS OF NAUSEA AND VOMITING
     Dosage: 0.5 MG, QD
     Route: 048
     Dates: start: 20160629, end: 20160701
  23. ALOXI [Concomitant]
     Active Substance: PALONOSETRON HYDROCHLORIDE
     Dosage: 5 ML, ONCE
     Route: 042
     Dates: start: 20160823, end: 20160823

REACTIONS (1)
  - Pyrexia [Recovered/Resolved]

NARRATIVE: CASE EVENT DATE: 20160701
